FAERS Safety Report 7284205-0 (Version None)
Quarter: 2011Q1

REPORT INFORMATION
  Report Type: 
  Country: None (occurrence: None)
  Receive Date: 20110209
  Receipt Date: 20110203
  Transmission Date: 20110831
  Serious: No
  Sender: FDA-Public Use
  Company Number: US-PFIZER INC-2011025803

PATIENT
  Sex: Female

DRUGS (3)
  1. EFFEXOR [Suspect]
     Indication: DEPRESSION
     Dosage: 225 MG, PER DAY
  2. EFFEXOR [Suspect]
     Indication: ANXIETY
     Dosage: 150 MG, UNK
  3. EFFEXOR [Suspect]
     Dosage: 75 MG, UNK

REACTIONS (1)
  - WITHDRAWAL SYNDROME [None]
